FAERS Safety Report 8277641-7 (Version None)
Quarter: 2012Q2

REPORT INFORMATION
  Report Type: 
  Country: None (occurrence: None)
  Receive Date: 20120412
  Receipt Date: 20120402
  Transmission Date: 20120825
  Serious: Yes (Hospitalization)
  Sender: FDA-Public Use
  Company Number: IT-JNJFOC-20120401594

PATIENT
  Age: 72 Year
  Sex: Male

DRUGS (9)
  1. CARVEDILOL [Concomitant]
     Route: 065
  2. ALENDRONATE SODIUM [Concomitant]
     Route: 065
  3. MICARDIS [Concomitant]
     Route: 065
  4. ATORVASTATIN [Concomitant]
     Route: 065
  5. INFLIXIMAB, RECOMBINANT [Suspect]
     Route: 042
     Dates: start: 20100623
  6. ARAVA [Concomitant]
     Route: 065
  7. INFLIXIMAB, RECOMBINANT [Suspect]
     Indication: RHEUMATOID ARTHRITIS
     Route: 042
     Dates: start: 20120111
  8. PREDNISONE TAB [Concomitant]
     Route: 065
  9. ASPIRIN [Concomitant]
     Route: 065

REACTIONS (1)
  - RESPIRATORY FAILURE [None]
